FAERS Safety Report 9368831 (Version 1)
Quarter: 2013Q2

REPORT INFORMATION
  Report Type: Spontaneous
  Country: JP (occurrence: JP)
  Receive Date: 20130626
  Receipt Date: 20130626
  Transmission Date: 20140414
  Serious: Yes (Death)
  Sender: FDA-Public Use
  Company Number: JP-B.I. PHARMACEUTICALS,INC./RIDGEFIELD-2013-BI-16865NB

PATIENT
  Age: 87 Year
  Sex: Female

DRUGS (4)
  1. PRAZAXA [Suspect]
     Indication: ATRIAL FIBRILLATION
     Route: 048
  2. DIURETICS [Concomitant]
     Route: 065
  3. ANTIDIABETIC AGENTS [Concomitant]
     Indication: DIABETES MELLITUS
     Route: 065
  4. ANTIHYPERTENSIVES [Concomitant]
     Indication: HYPERTENSION
     Route: 065

REACTIONS (2)
  - Cerebral infarction [Fatal]
  - Buccal mucosal roughening [Recovered/Resolved]
